FAERS Safety Report 4780366-3 (Version None)
Quarter: 2005Q3

REPORT INFORMATION
  Report Type: 
  Country: None (occurrence: None)
  Receive Date: 20050926
  Receipt Date: 20050915
  Transmission Date: 20060218
  Serious: Yes (Life-Threatening, Hospitalization, Disabling, Other)
  Sender: FDA-Public Use
  Company Number: 2003-12-0630

PATIENT
  Age: 76 Year
  Sex: Female
  Weight: 80 kg

DRUGS (10)
  1. INTEGRILIN [Suspect]
     Indication: ACUTE CORONARY SYNDROME
     Dosage: SEE IMAGE
     Route: 042
     Dates: start: 20031111, end: 20031111
  2. INTEGRILIN [Suspect]
     Indication: ACUTE CORONARY SYNDROME
     Dosage: SEE IMAGE
     Route: 042
     Dates: start: 20031111, end: 20031111
  3. INTEGRILIN [Suspect]
     Indication: ACUTE CORONARY SYNDROME
     Dosage: SEE IMAGE
     Route: 042
     Dates: start: 20031111, end: 20031111
  4. ASPIRIN [Suspect]
     Dosage: 81 MG QD ORAL
     Route: 048
  5. HEPARIN [Suspect]
     Dosage: INTRAVENOUS
     Route: 042
  6. PLAVIX [Suspect]
     Dosage: ORAL
     Route: 048
  7. LISINOPRIL [Concomitant]
  8. HYDROCHLOROTHIAZIDE [Concomitant]
  9. LIPITOR [Concomitant]
  10. GLUCOTROL [Concomitant]

REACTIONS (14)
  - ACTIVATED PARTIAL THROMBOPLASTIN TIME PROLONGED [None]
  - AORTIC DISSECTION [None]
  - BACK PAIN [None]
  - CEREBRAL HAEMORRHAGE [None]
  - CHEST DISCOMFORT [None]
  - CONFUSIONAL STATE [None]
  - DIPLEGIA [None]
  - DISORIENTATION [None]
  - PARAPLEGIA [None]
  - SPINAL CORD HAEMORRHAGE [None]
  - SPINAL CORD OEDEMA [None]
  - SUBARACHNOID HAEMORRHAGE [None]
  - SUBDURAL HAEMORRHAGE [None]
  - VENTRICULAR HYPERTROPHY [None]
